FAERS Safety Report 12590170 (Version 2)
Quarter: 2016Q3

REPORT INFORMATION
  Report Type: Spontaneous
  Country: US (occurrence: US)
  Receive Date: 20160725
  Receipt Date: 20160830
  Transmission Date: 20161109
  Serious: No
  Sender: FDA-Public Use
  Company Number: US-INCYTE CORPORATION-2016IN004335

PATIENT
  Sex: Female

DRUGS (3)
  1. PREDNISONE                         /00044702/ [Concomitant]
     Active Substance: PREDNISONE
     Indication: PRODUCT USED FOR UNKNOWN INDICATION
     Dosage: UNK
  2. JAKAFI [Suspect]
     Active Substance: RUXOLITINIB
     Dosage: 5 MG, QD
     Route: 048
     Dates: start: 20160526
  3. JAKAFI [Suspect]
     Active Substance: RUXOLITINIB
     Dosage: 5 MG, QD
     Route: 048
     Dates: end: 20160818

REACTIONS (3)
  - Drug dose omission [Recovered/Resolved]
  - Decreased activity [Recovered/Resolved]
  - Somnolence [Not Recovered/Not Resolved]
